FAERS Safety Report 18661921 (Version 2)
Quarter: 2020Q4

REPORT INFORMATION
  Report Type: Report from Study
  Country: CA (occurrence: CA)
  Receive Date: 20201224
  Receipt Date: 20201225
  Transmission Date: 20210114
  Serious: Yes (Death, Hospitalization, Other)
  Sender: FDA-Public Use
  Company Number: CA-SHIRE-CA202023028

PATIENT
  Age: 77 Year
  Sex: Male
  Weight: 46.7 kg

DRUGS (3)
  1. HUMAN NORMAL IMMUNOGLOBULIN; LIQUID 20 [Suspect]
     Active Substance: HUMAN IMMUNOGLOBULIN G
     Indication: PRIMARY IMMUNODEFICIENCY SYNDROME
     Dosage: 5 GRAM, 1/WEEK
     Route: 058
     Dates: start: 20180522
  2. MEGESTROL ACETATE. [Concomitant]
     Active Substance: MEGESTROL ACETATE
     Dosage: 40 MILLIGRAM, QID
     Route: 065
     Dates: start: 20190813
  3. HUMAN NORMAL IMMUNOGLOBULIN; LIQUID 20 [Suspect]
     Active Substance: HUMAN IMMUNOGLOBULIN G
     Dosage: 5 GRAM, 1/WEEK
     Route: 058
     Dates: start: 20200522

REACTIONS (2)
  - Illness [Unknown]
  - Death [Fatal]

NARRATIVE: CASE EVENT DATE: 20201215
